FAERS Safety Report 9372225 (Version 1)
Quarter: 2013Q2

REPORT INFORMATION
  Report Type: Spontaneous
  Country: CA (occurrence: CA)
  Receive Date: 20130627
  Receipt Date: 20130627
  Transmission Date: 20140414
  Serious: Yes (Other)
  Sender: FDA-Public Use
  Company Number: CA-NAPPMUNDI-CAN-2013-0004253

PATIENT
  Age: 67 Year
  Sex: Female

DRUGS (2)
  1. UNIPHYL TABLETS 400 MG [Suspect]
     Indication: EMPHYSEMA
     Dosage: 400 MG, DAILY
     Route: 048
  2. CIPRO /00697201/ [Suspect]
     Indication: URINARY TRACT INFECTION
     Dosage: UNK
     Route: 048
     Dates: start: 20130614

REACTIONS (2)
  - Gout [Unknown]
  - Drug interaction [Unknown]
